FAERS Safety Report 11442014 (Version 3)
Quarter: 2015Q4

REPORT INFORMATION
  Report Type: Spontaneous
  Country: ES (occurrence: ES)
  Receive Date: 20150901
  Receipt Date: 20151026
  Transmission Date: 20160304
  Serious: Yes (Other)
  Sender: FDA-Public Use
  Company Number: ES-EMD SERONO-8040137

PATIENT
  Age: 45 Year
  Sex: Male

DRUGS (6)
  1. DUPHALAC [Concomitant]
     Active Substance: LACTULOSE
     Indication: CONSTIPATION
  2. LORMETAZEPAM [Concomitant]
     Active Substance: LORMETAZEPAM
     Indication: INSOMNIA
     Dates: start: 20150818
  3. REBIF [Suspect]
     Active Substance: INTERFERON BETA-1A
     Indication: RELAPSING-REMITTING MULTIPLE SCLEROSIS
     Route: 058
     Dates: start: 20110721
  4. ENALAPRIL [Concomitant]
     Active Substance: ENALAPRIL
     Indication: HYPERTENSION
     Dates: start: 20150227
  5. VITAMIN D                          /00107901/ [Concomitant]
     Active Substance: ERGOCALCIFEROL
     Indication: PRODUCT USED FOR UNKNOWN INDICATION
     Dates: start: 20150115, end: 20150817
  6. IBUPROFEN. [Concomitant]
     Active Substance: IBUPROFEN
     Indication: INFLUENZA LIKE ILLNESS
     Dates: start: 20111118

REACTIONS (7)
  - Pulmonary mass [Unknown]
  - Renal mass [Unknown]
  - Renal necrosis [Unknown]
  - Urinary retention [Unknown]
  - Thyroid neoplasm [Unknown]
  - Renal neoplasm [Not Recovered/Not Resolved]
  - Retroperitoneal lymphadenopathy [Unknown]

NARRATIVE: CASE EVENT DATE: 20150814
